FAERS Safety Report 8598285-3 (Version None)
Quarter: 2012Q3

REPORT INFORMATION
  Report Type: 
  Country: None (occurrence: None)
  Receive Date: 20120816
  Receipt Date: 20120809
  Transmission Date: 20120928
  Serious: Yes (Other)
  Sender: FDA-Public Use
  Company Number: PHEH2012US012764

PATIENT
  Sex: Female

DRUGS (11)
  1. ARICEPT [Concomitant]
     Dosage: 5 MG, QD
     Route: 048
  2. GILENYA [Suspect]
     Indication: MULTIPLE SCLEROSIS
     Dosage: 0.5 MG, QD
     Route: 048
     Dates: start: 20110920, end: 20120807
  3. LORATADINE [Concomitant]
     Dosage: 10 MG, PRN
     Route: 048
  4. RISPERIDONE [Concomitant]
     Dosage: 0.5 MG, 2 QHS
  5. GILENYA [Suspect]
     Dosage: 0.5 MG, QD
     Route: 048
  6. GABAPENTIN [Concomitant]
     Dosage: 600 MG, QID (PRN)
     Route: 048
  7. TRAMADOL [Concomitant]
     Dosage: 50 MG, 2 PRN
     Route: 048
  8. DEPAKOTE [Concomitant]
     Dosage: 500 MG, BID
     Route: 048
  9. AMITRIPTYLINE HCL [Concomitant]
     Dosage: 50 MG, QHS
     Route: 048
  10. CONTRACEPTIVES [Concomitant]
     Route: 048
  11. AMITRIPTYLINE HCL [Concomitant]
     Dosage: 10 MG, QD
     Route: 048

REACTIONS (25)
  - PERSONALITY CHANGE [None]
  - RESTLESS LEGS SYNDROME [None]
  - HEADACHE [None]
  - CONFUSIONAL STATE [None]
  - CLUMSINESS [None]
  - DIZZINESS [None]
  - AMNESIA [None]
  - SPEECH DISORDER [None]
  - DIPLOPIA [None]
  - LETHARGY [None]
  - BALANCE DISORDER [None]
  - OEDEMA PERIPHERAL [None]
  - CENTRAL NERVOUS SYSTEM LESION [None]
  - CONTUSION [None]
  - ASTHENIA [None]
  - LACERATION [None]
  - FALL [None]
  - LYMPHOCYTE COUNT DECREASED [None]
  - BACK PAIN [None]
  - PAIN [None]
  - VISION BLURRED [None]
  - VISUAL IMPAIRMENT [None]
  - GAIT DISTURBANCE [None]
  - PAIN IN EXTREMITY [None]
  - HYPOAESTHESIA [None]
